FAERS Safety Report 7156280-5 (Version None)
Quarter: 2010Q4

REPORT INFORMATION
  Report Type: 
  Country: None (occurrence: None)
  Receive Date: 20101214
  Receipt Date: 20101208
  Transmission Date: 20110411
  Serious: Yes (Death, Hospitalization)
  Sender: FDA-Public Use
  Company Number: FR-PFIZER INC-2009211426

PATIENT
  Age: 63 Year
  Sex: Male
  Weight: 66 kg

DRUGS (6)
  1. SUTENT [Suspect]
     Indication: THYROID CANCER
     Dosage: 25 MG, 1X/DAY
     Dates: start: 20080610, end: 20090414
  2. LYRICA [Concomitant]
     Indication: BONE PAIN
     Dosage: 600 MG, 1X/DAY
     Dates: start: 20080101
  3. DICLOFENAC [Concomitant]
     Indication: BONE PAIN
     Dosage: 50 MG, 1X/DAY
     Dates: start: 20081201
  4. TRAMADOL [Concomitant]
     Indication: PAIN
     Dosage: 100 MG, AS NEEDED
     Dates: start: 20090201, end: 20090409
  5. EDUCTYL [Concomitant]
     Indication: CONSTIPATION PROPHYLAXIS
     Dosage: 1 DF, 1X/DAY
     Dates: start: 20080708
  6. PRIMPERAN TAB [Concomitant]
     Indication: PROPHYLAXIS OF NAUSEA AND VOMITING
     Dosage: 20 MG, 1X/DAY
     Dates: start: 20090201

REACTIONS (1)
  - MYOCARDIAL INFARCTION [None]
